FAERS Safety Report 19811789 (Version 28)
Quarter: 2025Q2

REPORT INFORMATION
  Report Type: Report from Study
  Country: US (occurrence: US)
  Receive Date: 20210909
  Receipt Date: 20250526
  Transmission Date: 20250716
  Serious: Yes (Hospitalization, Other)
  Sender: TAKEDA
  Company Number: US-TAKEDA-2021TUS054586

PATIENT
  Age: 78 Year
  Sex: Female
  Weight: 113 kg

DRUGS (51)
  1. HUMAN IMMUNOGLOBULIN G [Suspect]
     Active Substance: HUMAN IMMUNOGLOBULIN G
     Indication: Immunodeficiency common variable
     Dosage: 45 GRAM, Q4WEEKS
     Dates: start: 20210715
  2. HUMAN IMMUNOGLOBULIN G [Suspect]
     Active Substance: HUMAN IMMUNOGLOBULIN G
     Dosage: 45 GRAM, Q4WEEKS
  3. HUMAN IMMUNOGLOBULIN G [Suspect]
     Active Substance: HUMAN IMMUNOGLOBULIN G
     Dosage: 55 GRAM, Q4WEEKS
  4. HUMAN IMMUNOGLOBULIN G [Suspect]
     Active Substance: HUMAN IMMUNOGLOBULIN G
  5. HUMAN IMMUNOGLOBULIN G [Suspect]
     Active Substance: HUMAN IMMUNOGLOBULIN G
     Dosage: 35 GRAM, Q4WEEKS
  6. HYDRALAZINE HCL [Concomitant]
     Active Substance: HYDRALAZINE HYDROCHLORIDE
  7. HEPARIN [Concomitant]
     Active Substance: HEPARIN SODIUM
  8. DIPHENHYDRAMINE [Concomitant]
     Active Substance: DIPHENHYDRAMINE
  9. GLIMEPIRIDE [Concomitant]
     Active Substance: GLIMEPIRIDE
  10. SODIUM CHLORIDE [Concomitant]
     Active Substance: SODIUM CHLORIDE
  11. EPINEPHRINE [Concomitant]
     Active Substance: EPINEPHRINE
  12. LEVOTHYROXINE SODIUM [Concomitant]
     Active Substance: LEVOTHYROXINE SODIUM
  13. AMLODIPINE BESYLATE [Concomitant]
     Active Substance: AMLODIPINE BESYLATE
  14. BISOPROLOL FUMARATE [Concomitant]
     Active Substance: BISOPROLOL FUMARATE
  15. ACETAMINOPHEN [Concomitant]
     Active Substance: ACETAMINOPHEN
  16. OLMESARTAN MEDOXOMIL [Concomitant]
     Active Substance: OLMESARTAN MEDOXOMIL
  17. OXYGEN [Concomitant]
     Active Substance: OXYGEN
  18. TORSEMIDE [Concomitant]
     Active Substance: TORSEMIDE
  19. SODIUM CHLORIDE [Concomitant]
     Active Substance: SODIUM CHLORIDE
  20. CYMBALTA [Concomitant]
     Active Substance: DULOXETINE HYDROCHLORIDE
  21. LIPITOR [Concomitant]
     Active Substance: ATORVASTATIN CALCIUM
  22. LIDOCAINE [Concomitant]
     Active Substance: LIDOCAINE
  23. FERROUS SULFATE [Concomitant]
     Active Substance: FERROUS SULFATE
  24. BUDESONIDE [Concomitant]
     Active Substance: BUDESONIDE
  25. VITAMIN D3 [Concomitant]
     Active Substance: CHOLECALCIFEROL
  26. POTASSIUM CHLORIDE [Concomitant]
     Active Substance: POTASSIUM CHLORIDE
  27. OLMESARTAN [Concomitant]
     Active Substance: OLMESARTAN
  28. ELIQUIS [Concomitant]
     Active Substance: APIXABAN
  29. BISOPROLOL [Concomitant]
     Active Substance: BISOPROLOL
  30. HYDROCHLOROTHIAZIDE [Concomitant]
     Active Substance: HYDROCHLOROTHIAZIDE
  31. FUROSEMIDE [Concomitant]
     Active Substance: FUROSEMIDE
  32. ALBUTEROL SULFATE [Concomitant]
     Active Substance: ALBUTEROL SULFATE
  33. TRELEGY ELLIPTA [Concomitant]
     Active Substance: FLUTICASONE FUROATE\UMECLIDINIUM BROMIDE\VILANTEROL TRIFENATATE
  34. XARELTO [Concomitant]
     Active Substance: RIVAROXABAN
  35. BREZTRI [Concomitant]
     Active Substance: BUDESONIDE\FORMOTEROL\GLYCOPYRROLATE
  36. VITAMIN B [Concomitant]
     Active Substance: VITAMIN B
  37. DIPHENHYDRAMINE HYDROCHLORIDE [Concomitant]
     Active Substance: DIPHENHYDRAMINE HYDROCHLORIDE
  38. GABAPENTIN [Concomitant]
     Active Substance: GABAPENTIN
  39. Brompheniramine maleate, pseudoephedrine hcl, dextromethorphan hydrobr [Concomitant]
  40. ATORVASTATIN CALCIUM [Concomitant]
     Active Substance: ATORVASTATIN CALCIUM
  41. OHTUVAYRE [Concomitant]
     Active Substance: ENSIFENTRINE
  42. SPIRONOLACTONE [Concomitant]
     Active Substance: SPIRONOLACTONE
  43. FERROUS SULFATE [Concomitant]
     Active Substance: FERROUS SULFATE
  44. PROMETHAZINE [Concomitant]
     Active Substance: PROMETHAZINE HYDROCHLORIDE
  45. DOXYCYCLINE HYCLATE [Concomitant]
     Active Substance: DOXYCYCLINE HYCLATE
  46. JARDIANCE [Concomitant]
     Active Substance: EMPAGLIFLOZIN
  47. HYDROCODONE [Concomitant]
     Active Substance: HYDROCODONE
  48. CLOPIDOGREL [Concomitant]
     Active Substance: CLOPIDOGREL BISULFATE
  49. ALLOPURINOL [Concomitant]
     Active Substance: ALLOPURINOL
  50. BUMETANIDE [Concomitant]
     Active Substance: BUMETANIDE
  51. ASPIRIN [Concomitant]
     Active Substance: ASPIRIN

REACTIONS (28)
  - COVID-19 pneumonia [Recovering/Resolving]
  - Pericardial effusion [Unknown]
  - Pericarditis [Unknown]
  - Atrial fibrillation [Recovering/Resolving]
  - Pneumonia [Unknown]
  - Upper limb fracture [Unknown]
  - Urinary tract infection [Unknown]
  - Fluid retention [Unknown]
  - Blood sodium increased [Unknown]
  - Intestinal obstruction [Unknown]
  - Poor venous access [Unknown]
  - Peripheral swelling [Unknown]
  - Fall [Recovering/Resolving]
  - Dyspnoea exertional [Unknown]
  - Limb injury [Unknown]
  - Cellulitis [Unknown]
  - COVID-19 [Unknown]
  - Weight increased [Unknown]
  - Incorrect dose administered [Unknown]
  - Weight decreased [Unknown]
  - Contusion [Unknown]
  - Oedema peripheral [Unknown]
  - Hypertension [Unknown]
  - Dyspnoea [Unknown]
  - Back pain [Recovering/Resolving]
  - Arthralgia [Unknown]
  - Headache [Unknown]
  - Fatigue [Unknown]

NARRATIVE: CASE EVENT DATE: 20210820
